FAERS Safety Report 5923994-1 (Version None)
Quarter: 2008Q4

REPORT INFORMATION
  Report Type: 
  Country: None (occurrence: None)
  Receive Date: 20081020
  Receipt Date: 20081009
  Transmission Date: 20090506
  Serious: Yes (Other)
  Sender: FDA-Public Use
  Company Number: PHHY2008ZA23701

PATIENT
  Sex: Female

DRUGS (7)
  1. ZOMETA [Suspect]
     Indication: METASTASES TO BONE
     Dosage: MONTHLY
     Dates: start: 20060609, end: 20080818
  2. FOLFOX-4 [Concomitant]
     Dosage: UNK
     Dates: start: 20070630, end: 20080929
  3. FOLFIRI [Concomitant]
     Dosage: UNK
     Dates: start: 20060609, end: 20070604
  4. AVASTIN [Concomitant]
     Dosage: UNK
     Dates: start: 20060609, end: 20070604
  5. AVASTIN [Concomitant]
     Dosage: 5 MG/KG
     Dates: start: 20070630, end: 20080929
  6. PALONOSETRON [Concomitant]
     Dosage: UNK
     Dates: start: 20070630, end: 20080929
  7. EMEND [Concomitant]
     Dosage: UNK
     Dates: start: 20070630, end: 20080929

REACTIONS (8)
  - LYMPHADENOPATHY [None]
  - ORAL DISCHARGE [None]
  - OSTEOMYELITIS [None]
  - OSTEONECROSIS [None]
  - SEPSIS [None]
  - TOOTH ABSCESS [None]
  - TOOTH EXTRACTION [None]
  - TOOTHACHE [None]
